FAERS Safety Report 8533911-6 (Version None)
Quarter: 2012Q3

REPORT INFORMATION
  Report Type: 
  Country: None (occurrence: None)
  Receive Date: 20120712
  Receipt Date: 20120706
  Transmission Date: 20120928
  Serious: Yes (Other)
  Sender: FDA-Public Use
  Company Number: 218021

PATIENT
  Age: 61 Year
  Sex: Female

DRUGS (12)
  1. VERAPAMIL [Concomitant]
  2. JANUVIA [Concomitant]
  3. VITAMIN (VITAMINS NOS) [Concomitant]
  4. ASPIRIN [Concomitant]
  5. EXEMESTANE [Concomitant]
  6. VENLAFAXINE HCL [Concomitant]
  7. PICATO [Suspect]
     Indication: ACTINIC KERATOSIS
     Dosage: (1 IN 1 D), TOPICAL
     Route: 061
     Dates: start: 20120605, end: 20120606
  8. CALCIUM CARBONATE [Concomitant]
  9. ZOMETA [Concomitant]
  10. MICARDIS [Concomitant]
  11. METFFORMIN HYDROCHLORIDE [Concomitant]
  12. ACIDOPHILUS (LACTOBACILLUS ACIDOPHILUS) [Concomitant]

REACTIONS (8)
  - SKIN DEPIGMENTATION [None]
  - APPLICATION SITE INFECTION [None]
  - CONJUNCTIVITIS [None]
  - KERATITIS [None]
  - APPLICATION SITE DISCOLOURATION [None]
  - TOXICITY TO VARIOUS AGENTS [None]
  - APPLICATION SITE BURN [None]
  - APPLICATION SITE VESICLES [None]
